FAERS Safety Report 24096844 (Version 1)
Quarter: 2024Q3

REPORT INFORMATION
  Report Type: Spontaneous
  Country: US (occurrence: US)
  Receive Date: 20240716
  Receipt Date: 20240716
  Transmission Date: 20241016
  Serious: No
  Sender: GRIFOLS
  Company Number: US-IGSA-BIG0024055

PATIENT
  Age: 38 Year
  Sex: Male
  Weight: 95 kg

DRUGS (2)
  1. GAMUNEX-C [Suspect]
     Active Substance: HUMAN IMMUNOGLOBULIN G
     Indication: Myasthenia gravis
     Dosage: 90 GRAM, TOTAL
     Route: 058
     Dates: start: 20230417, end: 20230419
  2. GAMUNEX-C [Suspect]
     Active Substance: HUMAN IMMUNOGLOBULIN G
     Indication: Off label use

REACTIONS (6)
  - Typical aura without headache [Recovered/Resolved]
  - Nausea [Recovered/Resolved]
  - Dizziness [Recovering/Resolving]
  - Dry mouth [Recovering/Resolving]
  - Vertigo [Recovering/Resolving]
  - Asthenia [Recovering/Resolving]

NARRATIVE: CASE EVENT DATE: 20230419
